FAERS Safety Report 4585490-6 (Version None)
Quarter: 2005Q1

REPORT INFORMATION
  Report Type: 
  Country: None (occurrence: None)
  Receive Date: 20050214
  Receipt Date: 20050203
  Transmission Date: 20050727
  Serious: Yes (Other)
  Sender: FDA-Public Use
  Company Number: US014662

PATIENT
  Age: 56 Year
  Sex: Male

DRUGS (2)
  1. GABITRIL [Suspect]
     Indication: SLEEP DISORDER
     Dosage: 100 MG QWKLY ORAL
     Route: 048
     Dates: start: 20050112, end: 20050119
  2. TYLENOL W/ CODEINE [Concomitant]

REACTIONS (10)
  - ABDOMINAL DISCOMFORT [None]
  - ALANINE AMINOTRANSFERASE INCREASED [None]
  - ASPARTATE AMINOTRANSFERASE INCREASED [None]
  - BLOOD BILIRUBIN INCREASED [None]
  - BLOOD GLUCOSE INCREASED [None]
  - DEPRESSED LEVEL OF CONSCIOUSNESS [None]
  - HYPERTENSIVE CRISIS [None]
  - HYPERTENSIVE ENCEPHALOPATHY [None]
  - MEDICATION ERROR [None]
  - PCO2 DECREASED [None]
